FAERS Safety Report 5992439-8 (Version None)
Quarter: 2008Q4

REPORT INFORMATION
  Report Type: 
  Country: None (occurrence: None)
  Receive Date: 20081202
  Receipt Date: 20071012
  Transmission Date: 20090506
  Serious: Yes (Disabling)
  Sender: FDA-Public Use
  Company Number: WAES 0710USA02916

PATIENT
  Age: 58 Year
  Sex: Female

DRUGS (6)
  1. FOSAMAX [Suspect]
     Indication: OSTEOPENIA
     Dosage: 5 MG/DAILY/PO : 70 MG/WKY/PO : 35 MG/WKY/PO
     Route: 048
     Dates: start: 20070301, end: 20070828
  2. FOSAMAX [Suspect]
     Indication: OSTEOPENIA
     Dosage: 5 MG/DAILY/PO : 70 MG/WKY/PO : 35 MG/WKY/PO
     Route: 048
     Dates: start: 19990101
  3. CENTRUM [Concomitant]
  4. NASONEX [Concomitant]
  5. SYNTHROID [Concomitant]
  6. CALCIUM [Concomitant]

REACTIONS (5)
  - ABDOMINAL PAIN [None]
  - ABDOMINAL PAIN UPPER [None]
  - GASTROOESOPHAGEAL REFLUX DISEASE [None]
  - MALAISE [None]
  - OSTEOPENIA [None]
